FAERS Safety Report 13853621 (Version 2)
Quarter: 2017Q3

REPORT INFORMATION
  Report Type: Spontaneous
  Country: BR (occurrence: BR)
  Receive Date: 20170810
  Receipt Date: 20170816
  Transmission Date: 20171127
  Serious: Yes (Other)
  Sender: FDA-Public Use
  Company Number: BR-JNJFOC-20170804841

PATIENT
  Sex: Female

DRUGS (1)
  1. HALDOL [Suspect]
     Active Substance: HALOPERIDOL
     Indication: SCHIZOAFFECTIVE DISORDER
     Route: 065
     Dates: start: 1989

REACTIONS (4)
  - Cerebrovascular accident [Unknown]
  - Drug dose omission [Unknown]
  - Product availability issue [Unknown]
  - Agitation [Unknown]

NARRATIVE: CASE EVENT DATE: 2008
